FAERS Safety Report 9656785 (Version 2)
Quarter: 2013Q4

REPORT INFORMATION
  Report Type: Spontaneous
  Country: BR (occurrence: BR)
  Receive Date: 20131030
  Receipt Date: 20131030
  Transmission Date: 20140711
  Serious: Yes (Other)
  Sender: FDA-Public Use
  Company Number: BR-BRISTOL-MYERS SQUIBB COMPANY-19536721

PATIENT
  Age: 58 Year
  Sex: Female

DRUGS (4)
  1. KOMBIGLYZE XR [Suspect]
     Indication: DIABETES MELLITUS
     Dosage: 1DF= 5MG/1000MG?FOR ABOUT 3 MONTHS
     Dates: start: 2013, end: 201309
  2. LOSARTAN [Concomitant]
  3. INDAPAMIDE [Concomitant]
     Dosage: 4-5 YRS
  4. INSULIN [Concomitant]

REACTIONS (1)
  - Tendonitis [Recovering/Resolving]
